APPROVED DRUG PRODUCT: ISOSORBIDE DINITRATE AND HYDRALAZINE HYDROCHLORIDE
Active Ingredient: HYDRALAZINE HYDROCHLORIDE; ISOSORBIDE DINITRATE
Strength: 37.5MG;20MG
Dosage Form/Route: TABLET;ORAL
Application: A215988 | Product #001 | TE Code: AB
Applicant: I3 PHARMACEUTICALS LLC
Approved: Jan 17, 2024 | RLD: No | RS: No | Type: RX